FAERS Safety Report 8251229-6 (Version None)
Quarter: 2012Q2

REPORT INFORMATION
  Report Type: 
  Country: None (occurrence: None)
  Receive Date: 20120402
  Receipt Date: 20120326
  Transmission Date: 20120825
  Serious: Yes (Hospitalization)
  Sender: FDA-Public Use
  Company Number: KR-JNJFOC-20120302700

PATIENT
  Sex: Male

DRUGS (3)
  1. ASPIRIN [Concomitant]
     Indication: HYPERTENSION
     Route: 065
  2. PLAVIX [Concomitant]
     Indication: HYPERTENSION
     Route: 065
  3. USTEKINUMAB [Suspect]
     Indication: PSORIASIS
     Route: 058
     Dates: start: 20120110, end: 20120207

REACTIONS (2)
  - PRURITUS [None]
  - HAEMOPTYSIS [None]
